FAERS Safety Report 4535440-3 (Version None)
Quarter: 2004Q4

REPORT INFORMATION
  Report Type: 
  Country: None (occurrence: None)
  Receive Date: 20041214
  Receipt Date: 20040923
  Transmission Date: 20050328
  Serious: No
  Sender: FDA-Public Use
  Company Number: USA040979071

PATIENT
  Age: 49 Year
  Sex: Male

DRUGS (6)
  1. CIALIS [Suspect]
     Dosage: 10 MG
     Dates: start: 20040922
  2. XANAX (ALPRAZOLAM DUM) [Concomitant]
  3. VICODIN [Concomitant]
  4. CLONIDINE [Concomitant]
  5. PRIMIDONE [Concomitant]
  6. TEMAZEPAM [Concomitant]

REACTIONS (1)
  - DRUG INEFFECTIVE [None]
